FAERS Safety Report 6994256-9 (Version None)
Quarter: 2010Q3

REPORT INFORMATION
  Report Type: 
  Country: None (occurrence: None)
  Receive Date: 20100917
  Receipt Date: 20070828
  Transmission Date: 20110219
  Serious: Yes (Other)
  Sender: FDA-Public Use
  Company Number: US-ASTRAZENECA-2007UW13471

PATIENT
  Sex: Female
  Weight: 89.8 kg

DRUGS (17)
  1. SEROQUEL [Suspect]
     Indication: HALLUCINATION
     Route: 048
     Dates: start: 20020101
  2. SEROQUEL [Suspect]
     Dosage: 50 - 100 MG
     Route: 048
     Dates: start: 20031201
  3. SEROQUEL [Suspect]
     Dosage: 25 MG - 200 MG, THRICE A DAY
     Route: 048
     Dates: start: 20041007
  4. SEROQUEL [Suspect]
     Dosage: 100 MG MORNING AND 300 MG AT NIGHT
     Route: 048
     Dates: start: 20050912
  5. LEXAPRO [Concomitant]
     Dosage: 10 MG - 20 MG
     Dates: start: 20031201
  6. LAMICTAL [Concomitant]
     Dosage: 25 MG - 200 MG
     Dates: start: 20040408
  7. FLEXERIL [Concomitant]
     Dosage: 10 MG TO 20 MG
     Dates: start: 20031219
  8. VALIUM [Concomitant]
     Dosage: 5 MG TO 20 MG
     Dates: start: 20040408
  9. PREVACID [Concomitant]
     Dates: start: 20050912
  10. TRAZODONE HCL [Concomitant]
     Dates: start: 20050204
  11. CYMBALTA [Concomitant]
     Dosage: 30 - 60 MG
     Dates: start: 20051116
  12. REQUIP [Concomitant]
     Dosage: 0.5 MG TO 10 MG
     Dates: start: 20060203
  13. ROXICET [Concomitant]
     Dosage: 5/325 MG ONE TABLET MORNING AND 2 TABLET NIGHT
     Dates: start: 20031201
  14. LIMBITROL [Concomitant]
     Dosage: 10/25 MG THREE AT NIGHT
     Dates: start: 20050204
  15. LITHIUM CARBONATE [Concomitant]
     Dates: start: 20031201
  16. WELLBUTRIN [Concomitant]
     Dates: start: 20031201
  17. ULTRAM [Concomitant]
     Dosage: 50 - 105 MG
     Dates: start: 20051130

REACTIONS (2)
  - HYPERGLYCAEMIA [None]
  - PANCREATITIS [None]
